FAERS Safety Report 9261686 (Version 1)
Quarter: 2013Q2

REPORT INFORMATION
  Report Type: Spontaneous
  Country: US (occurrence: US)
  Receive Date: 20130429
  Receipt Date: 20130429
  Transmission Date: 20140414
  Serious: Yes (Other)
  Sender: FDA-Public Use
  Company Number: US-BAYER-2013-050810

PATIENT
  Age: 72 Year
  Sex: Male
  Weight: 84 kg

DRUGS (10)
  1. ALEVE CAPLET [Suspect]
     Dosage: UNK
     Route: 048
     Dates: start: 2008, end: 201211
  2. ALEVE CAPLET [Suspect]
     Dosage: 2 DF, UNK
     Dates: start: 2012
  3. BAYER ASPIRIN REGIMEN ADULT LOW STRENGTH [Suspect]
     Dosage: 81 MG,
     Route: 048
     Dates: end: 201302
  4. ATORVASTATIN [Concomitant]
  5. BUPROPION [Concomitant]
  6. AMLODIPINE [Concomitant]
  7. TRAZODONE [Concomitant]
  8. CLOPIDOGREL [Concomitant]
  9. ACETAMINOPHEN PM [Concomitant]
  10. ARTHRITIS PAIN FORMULA [Concomitant]

REACTIONS (7)
  - Liver function test abnormal [Not Recovered/Not Resolved]
  - Haemorrhagic diathesis [Recovered/Resolved]
  - Myocardial infarction [None]
  - Blood glucose increased [None]
  - Incorrect drug administration duration [None]
  - Incorrect dose administered [None]
  - Increased tendency to bruise [Recovered/Resolved]
